FAERS Safety Report 6446514-4 (Version None)
Quarter: 2009Q4

REPORT INFORMATION
  Report Type: 
  Country: None (occurrence: None)
  Receive Date: 20091119
  Receipt Date: 20091110
  Transmission Date: 20100525
  Serious: Yes (Hospitalization)
  Sender: FDA-Public Use
  Company Number: US-NOVOPROD-300578

PATIENT
  Sex: Male

DRUGS (7)
  1. LEVEMIR [Suspect]
     Indication: TYPE 2 DIABETES MELLITUS
     Dosage: 30 IU, BID
     Route: 058
     Dates: start: 20090901
  2. LEVEMIR [Suspect]
     Dosage: 35 IU, QD
     Route: 058
     Dates: start: 20090901
  3. LEVOTHYROXINE SODIUM [Concomitant]
     Indication: HYPOTHYROIDISM
     Dosage: UNK
  4. COZAAR [Concomitant]
     Indication: HYPERTENSION
     Dosage: UNK
  5. CLONIDINE [Concomitant]
     Indication: HYPERTENSION
     Dosage: UNK
  6. OMEPRAZOLE [Concomitant]
     Indication: DRUG USE FOR UNKNOWN INDICATION
     Dosage: UNK
  7. ASPIRIN [Concomitant]
     Indication: DRUG USE FOR UNKNOWN INDICATION
     Dosage: UNK

REACTIONS (9)
  - BLOOD GLUCOSE FLUCTUATION [None]
  - BLOOD PRESSURE INCREASED [None]
  - DISCOMFORT [None]
  - DIZZINESS [None]
  - DYSPNOEA [None]
  - HYPERHIDROSIS [None]
  - INSOMNIA [None]
  - MUSCLE SPASMS [None]
  - POLLAKIURIA [None]
